FAERS Safety Report 19902334 (Version 2)
Quarter: 2022Q1

REPORT INFORMATION
  Report Type: Spontaneous
  Country: US (occurrence: US)
  Receive Date: 20210930
  Receipt Date: 20220125
  Transmission Date: 20220423
  Serious: Yes (Other)
  Sender: FDA-Public Use
  Company Number: US-SA-SAC20210923000944

PATIENT
  Age: 51 Year
  Sex: Male

DRUGS (2)
  1. AUBAGIO [Suspect]
     Active Substance: TERIFLUNOMIDE
     Indication: Multiple sclerosis
     Dosage: 14 MG, QD
     Route: 048
     Dates: start: 201808
  2. OCREVUS [Suspect]
     Active Substance: OCRELIZUMAB

REACTIONS (10)
  - Multiple sclerosis relapse [Unknown]
  - Neuropathy peripheral [Unknown]
  - Stress [Unknown]
  - Product dose omission issue [Unknown]
  - Memory impairment [Unknown]
  - Peripheral swelling [Unknown]
  - Fatigue [Unknown]
  - Feeling abnormal [Unknown]
  - Headache [Unknown]
  - Condition aggravated [Unknown]

NARRATIVE: CASE EVENT DATE: 20210801
